FAERS Safety Report 8415493-2 (Version None)
Quarter: 2012Q2

REPORT INFORMATION
  Report Type: 
  Country: None (occurrence: None)
  Receive Date: 20120606
  Receipt Date: 20120605
  Transmission Date: 20120825
  Serious: Yes (Hospitalization)
  Sender: FDA-Public Use
  Company Number: PHHY2012NL039258

PATIENT
  Sex: Male

DRUGS (1)
  1. ZOMETA [Suspect]
     Dosage: 4 MG/100 ML SOLUTION 1X PER 28 DAYS

REACTIONS (3)
  - BLOOD GLUCOSE ABNORMAL [None]
  - DRUG INEFFECTIVE [None]
  - DEVICE DIFFICULT TO USE [None]
